FAERS Safety Report 4823537-X (Version None)
Quarter: 2005Q4

REPORT INFORMATION
  Report Type: 
  Country: None (occurrence: None)
  Receive Date: 20051107
  Receipt Date: 20051025
  Transmission Date: 20060501
  Serious: Yes (Death, Other)
  Sender: FDA-Public Use
  Company Number: 2005111256

PATIENT
  Age: 54 Year
  Sex: Female

DRUGS (6)
  1. VIAGRA [Suspect]
     Indication: PULMONARY HYPERTENSION
     Dosage: 100 MG (25 MG, 4 IN 1 D)
     Dates: start: 20050301, end: 20050702
  2. FLOLAN [Concomitant]
  3. BOSENTAN [Concomitant]
  4. LASIX [Concomitant]
  5. NEXIUM [Concomitant]
  6. WARFARIN SODIUM [Concomitant]

REACTIONS (3)
  - CONDITION AGGRAVATED [None]
  - PULMONARY HYPERTENSION [None]
  - SUDDEN DEATH [None]
